FAERS Safety Report 7626877-4 (Version None)
Quarter: 2011Q3

REPORT INFORMATION
  Report Type: 
  Country: None (occurrence: None)
  Receive Date: 20110721
  Receipt Date: 20110712
  Transmission Date: 20111222
  Serious: Yes (Other)
  Sender: FDA-Public Use
  Company Number: US-JNJFOC-20110705733

PATIENT
  Age: 18 Year
  Sex: Female
  Weight: 72.58 kg

DRUGS (2)
  1. ACETAMINOPHEN [Suspect]
     Indication: HEADACHE
     Route: 048
     Dates: end: 20101228
  2. ACETAMINOPHEN [Suspect]
     Route: 048

REACTIONS (2)
  - DIZZINESS [None]
  - ABORTION SPONTANEOUS [None]
